FAERS Safety Report 19488213 (Version 7)
Quarter: 2025Q4

REPORT INFORMATION
  Report Type: Spontaneous
  Country: JP (occurrence: JP)
  Receive Date: 20210702
  Receipt Date: 20251013
  Transmission Date: 20260117
  Serious: Yes (Other)
  Sender: BIOCRYST PHARMACEUTICALS
  Company Number: JP-BIOCRYST-2021BCR00177

PATIENT
  Age: 36 Year
  Sex: Female
  Weight: 40 kg

DRUGS (6)
  1. ORLADEYO [Suspect]
     Active Substance: BEROTRALSTAT HYDROCHLORIDE
     Indication: Hereditary angioedema with normal C1 esterase inhibitor
     Dosage: 150 MG, QD
     Route: 048
     Dates: start: 20210506, end: 20210519
  2. ORLADEYO [Suspect]
     Active Substance: BEROTRALSTAT HYDROCHLORIDE
     Indication: Prophylaxis
  3. BERINERT P [Concomitant]
     Active Substance: HUMAN C1-ESTERASE INHIBITOR
     Indication: Hereditary angioedema
     Dosage: UNK UNK, QD
     Route: 042
     Dates: start: 20210517, end: 20210517
  4. FIRAZYR [Concomitant]
     Active Substance: ICATIBANT ACETATE
     Indication: Hereditary angioedema
     Dosage: 30 MG, QD
     Route: 058
     Dates: start: 20210516, end: 20210516
  5. GASTER [Concomitant]
     Active Substance: FAMOTIDINE
     Indication: Nausea
     Dosage: 20 MG, QD
     Route: 048
     Dates: start: 20210518
  6. NAUZELIN [Concomitant]
     Active Substance: DOMPERIDONE
     Indication: Adverse reaction
     Dosage: UNK

REACTIONS (10)
  - Abdominal distension [Recovering/Resolving]
  - Abdominal distension [Recovering/Resolving]
  - Nausea [Recovering/Resolving]
  - Malaise [Recovering/Resolving]
  - Abdominal pain [Recovered/Resolved]
  - Headache [Recovering/Resolving]
  - Diarrhoea [Recovered/Resolved]
  - Vomiting [Recovered/Resolved]
  - Ear discomfort [Recovering/Resolving]
  - Amenorrhoea [Recovering/Resolving]

NARRATIVE: CASE EVENT DATE: 20210508
